FAERS Safety Report 8544476-7 (Version None)
Quarter: 2012Q3

REPORT INFORMATION
  Report Type: 
  Country: None (occurrence: None)
  Receive Date: 20120717
  Receipt Date: 20120705
  Transmission Date: 20120928
  Serious: Yes (Death, Other)
  Sender: FDA-Public Use
  Company Number: FK201201857

PATIENT
  Age: 65 Year
  Sex: Male

DRUGS (1)
  1. HEPARIN [Suspect]
     Indication: PROPHYLAXIS

REACTIONS (8)
  - OCCULT BLOOD POSITIVE [None]
  - SEPSIS [None]
  - PERIPHERAL COLDNESS [None]
  - CONFUSIONAL STATE [None]
  - HEPARIN-INDUCED THROMBOCYTOPENIA [None]
  - GASTROINTESTINAL NECROSIS [None]
  - PULSE ABSENT [None]
  - CYANOSIS [None]
